FAERS Safety Report 5906238-6 (Version None)
Quarter: 2008Q4

REPORT INFORMATION
  Report Type: 
  Country: None (occurrence: None)
  Receive Date: 20081002
  Receipt Date: 20080921
  Transmission Date: 20090506
  Serious: Yes (Hospitalization)
  Sender: FDA-Public Use
  Company Number: AU-BAXTER-2008BH008886

PATIENT
  Age: 63 Year
  Sex: Female

DRUGS (4)
  1. TISSUCOL/TISSEEL DUO STIM4 [Suspect]
     Indication: ABDOMINOPLASTY
     Dosage: DOSE UNIT:UNKNOWN
     Route: 065
     Dates: start: 20080801, end: 20080801
  2. COVERSYL [Concomitant]
     Indication: HYPERTENSION
     Dosage: DOSE UNIT:UNKNOWN
     Route: 065
  3. CALCIUM [Concomitant]
     Indication: SUPPLEMENTATION THERAPY
     Route: 065
  4. VITAMINS [Concomitant]
     Indication: DRUG USE FOR UNKNOWN INDICATION
     Route: 065

REACTIONS (1)
  - POST PROCEDURAL DRAINAGE [None]
